FAERS Safety Report 24015187 (Version 2)
Quarter: 2024Q4

REPORT INFORMATION
  Report Type: Report from Study
  Country: US (occurrence: US)
  Receive Date: 20240626
  Receipt Date: 20241009
  Transmission Date: 20250115
  Serious: Yes (Hospitalization)
  Sender: DAIICHI
  Company Number: US-DSJP-DSU-2024-105887

PATIENT
  Age: 70 Year
  Sex: Female
  Weight: 109.3 kg

DRUGS (2)
  1. ENHERTU [Suspect]
     Active Substance: FAM-TRASTUZUMAB DERUXTECAN-NXKI
     Indication: Uterine cancer
     Dosage: 298.62 MG, ONCE EVERY 3 WK
     Route: 042
     Dates: start: 20240124, end: 20240124
  2. ENHERTU [Suspect]
     Active Substance: FAM-TRASTUZUMAB DERUXTECAN-NXKI
     Dosage: 238 MG, ONCE EVERY 3 WK
     Route: 042
     Dates: start: 20240124

REACTIONS (3)
  - Dehydration [Recovered/Resolved]
  - Weight increased [Not Recovered/Not Resolved]
  - Off label use [Not Recovered/Not Resolved]

NARRATIVE: CASE EVENT DATE: 20240123
